FAERS Safety Report 21233550 (Version 1)
Quarter: 2022Q3

REPORT INFORMATION
  Report Type: Spontaneous
  Country: US (occurrence: US)
  Receive Date: 20220819
  Receipt Date: 20220819
  Transmission Date: 20221027
  Serious: Yes (Other)
  Sender: FDA-Public Use
  Company Number: US-MYLANLABS-2022M1087285

PATIENT
  Age: 7 Year
  Sex: Male

DRUGS (7)
  1. BUDESONIDE [Suspect]
     Active Substance: BUDESONIDE
     Indication: Oesophagitis
     Dosage: DELAYED RELEASE; BY OPENING THE CAPSULE, GRIND THE GRANULES AND MIX WITH 10ML WATER TO TARGET THE ST
     Route: 048
  2. BUDESONIDE [Suspect]
     Active Substance: BUDESONIDE
     Indication: Eosinophilic gastritis
  3. BUDESONIDE [Suspect]
     Active Substance: BUDESONIDE
     Indication: Duodenitis
  4. LANSOPRAZOLE [Suspect]
     Active Substance: LANSOPRAZOLE
     Indication: Eosinophilic gastritis
     Dosage: UNK
     Route: 065
  5. LANSOPRAZOLE [Suspect]
     Active Substance: LANSOPRAZOLE
     Indication: Duodenitis
  6. PREDNISONE [Suspect]
     Active Substance: PREDNISONE
     Indication: Eosinophilic gastritis
     Dosage: 1 MILLIGRAM/KILOGRAM, QD
     Route: 065
  7. PREDNISONE [Suspect]
     Active Substance: PREDNISONE
     Indication: Duodenitis

REACTIONS (2)
  - Drug ineffective for unapproved indication [Unknown]
  - Off label use [Unknown]
